FAERS Safety Report 20603259 (Version 1)
Quarter: 2022Q1

REPORT INFORMATION
  Report Type: Report from Study
  Country: US (occurrence: US)
  Receive Date: 20220316
  Receipt Date: 20220316
  Transmission Date: 20220423
  Serious: Yes (Other)
  Sender: FDA-Public Use
  Company Number: US-GILEAD-2022-0573716

PATIENT
  Sex: Female

DRUGS (6)
  1. AVIPTADIL [Suspect]
     Active Substance: AVIPTADIL
     Indication: Acute respiratory distress syndrome
     Dosage: UNK
     Route: 065
     Dates: start: 20210816
  2. PLACEBO [Suspect]
     Active Substance: UNSPECIFIED INGREDIENT
     Indication: Acute respiratory distress syndrome
     Dosage: UNK
     Route: 065
     Dates: start: 20210816
  3. REMDESIVIR [Suspect]
     Active Substance: REMDESIVIR
     Indication: Acute respiratory distress syndrome
     Dosage: UNK
     Route: 065
     Dates: start: 20210816
  4. AVIPTADIL [Suspect]
     Active Substance: AVIPTADIL
     Indication: COVID-19
  5. PLACEBO [Suspect]
     Active Substance: UNSPECIFIED INGREDIENT
     Indication: COVID-19
  6. REMDESIVIR [Suspect]
     Active Substance: REMDESIVIR
     Indication: COVID-19

REACTIONS (2)
  - Abortion spontaneous [Recovered/Resolved]
  - Maternal exposure during pregnancy [Recovered/Resolved]

NARRATIVE: CASE EVENT DATE: 20211215
